FAERS Safety Report 16410107 (Version 3)
Quarter: 2019Q3

REPORT INFORMATION
  Report Type: Report from Study
  Country: IT (occurrence: IT)
  Receive Date: 20190610
  Receipt Date: 20190710
  Transmission Date: 20191004
  Serious: Yes (Hospitalization, Other)
  Sender: FDA-Public Use
  Company Number: IT-MYLANLABS-2019M1053419

PATIENT
  Age: 65 Year
  Sex: Female
  Weight: 55 kg

DRUGS (15)
  1. TRASTUZUMAB. [Suspect]
     Active Substance: TRASTUZUMAB
     Indication: HER-2 POSITIVE BREAST CANCER
     Dosage: 440 MILLIGRAM, 3XW
     Route: 042
     Dates: start: 20180507, end: 20180507
  2. TAXOTERE [Suspect]
     Active Substance: DOCETAXEL
     Indication: HER-2 POSITIVE BREAST CANCER
     Dosage: 75 MILLIGRAM/SQ. METER, 3XW
     Route: 042
     Dates: start: 20180507, end: 20180619
  3. POLASE                             /06428001/ [Concomitant]
     Indication: HYPOKALAEMIA
     Route: 065
     Dates: start: 20180615, end: 20180626
  4. EUTIROX [Concomitant]
     Active Substance: LEVOTHYROXINE SODIUM
     Route: 065
  5. DEXAMETHASONE. [Concomitant]
     Active Substance: DEXAMETHASONE
     Route: 065
     Dates: start: 20180507, end: 20181002
  6. ENAPREN [Concomitant]
     Active Substance: ENALAPRIL MALEATE
     Dosage: ONGOING = NOT CHECKED
     Route: 065
     Dates: end: 20180615
  7. NATECAL [Concomitant]
     Active Substance: CALCIUM CARBONATE\CHOLECALCIFEROL
     Dosage: UNK
     Route: 065
     Dates: end: 20180618
  8. DUROGESIC [Concomitant]
     Active Substance: FENTANYL
     Route: 065
     Dates: start: 20180502
  9. CHLORPHENAMINE [Concomitant]
     Active Substance: CHLORPHENIRAMINE MALEATE
     Dosage: ONGOING = CHECKED
     Route: 065
     Dates: start: 20180507
  10. SOLDESAM [Concomitant]
     Active Substance: DEXAMETHASONE
     Route: 065
     Dates: start: 20180502
  11. TAXOL [Suspect]
     Active Substance: PACLITAXEL
     Indication: BREAST CANCER
     Dosage: 80 MILLIGRAM/SQ. METER, QW
     Route: 042
     Dates: start: 20180731, end: 20181023
  12. BISOPROLOLO [Concomitant]
     Active Substance: BISOPROLOL FUMARATE
     Dosage: ONGOING = NOT CHECKED
     Route: 065
     Dates: end: 20180615
  13. ZOLOFT [Concomitant]
     Active Substance: SERTRALINE HYDROCHLORIDE
     Route: 065
     Dates: start: 20160803
  14. PERTUZUMAB. [Suspect]
     Active Substance: PERTUZUMAB
     Indication: HER-2 POSITIVE BREAST CANCER
     Dosage: 840 MILLIGRAM, 3XW
     Route: 042
     Dates: start: 20180507, end: 20180507
  15. RANITIDINE. [Concomitant]
     Active Substance: RANITIDINE
     Route: 065
     Dates: start: 20180507, end: 20181002

REACTIONS (9)
  - Diarrhoea [Not Recovered/Not Resolved]
  - Febrile neutropenia [Recovered/Resolved]
  - Dysphagia [Recovered/Resolved]
  - Nausea [Recovered/Resolved]
  - Dysaesthesia [Unknown]
  - Fatigue [Not Recovered/Not Resolved]
  - Hypokalaemia [Not Recovered/Not Resolved]
  - Palmar-plantar erythrodysaesthesia syndrome [Not Recovered/Not Resolved]
  - Dysgeusia [Recovered/Resolved]

NARRATIVE: CASE EVENT DATE: 20180615
